FAERS Safety Report 20356794 (Version 1)
Quarter: 2022Q1

REPORT INFORMATION
  Report Type: Spontaneous
  Country: US (occurrence: None)
  Receive Date: 20220119
  Receipt Date: 20220119
  Transmission Date: 20220424
  Serious: Yes (Other)
  Sender: FDA-Public Use
  Company Number: None

PATIENT
  Age: 48 Year
  Sex: Female
  Weight: 76.5 kg

DRUGS (7)
  1. ARIPIPRAZOLE [Suspect]
     Active Substance: ARIPIPRAZOLE
     Indication: Bipolar II disorder
     Dosage: OTHER QUANTITY : 0.1 ML;?OTHER FREQUENCY : AS DIRECTED;?
     Route: 048
     Dates: start: 20211110, end: 20211214
  2. ARIPIPRAZOLE [Suspect]
     Active Substance: ARIPIPRAZOLE
     Indication: Bipolar II disorder
     Dosage: OTHER QUANTITY : 0.1 ML;?OTHER FREQUENCY : EVERY 4 DAYS;?
     Route: 048
     Dates: start: 20210926, end: 20211107
  3. VYVANSE [Concomitant]
     Active Substance: LISDEXAMFETAMINE DIMESYLATE
  4. WELLBUTRIN [Concomitant]
     Active Substance: BUPROPION HYDROCHLORIDE
  5. OMEPRAZOLE [Concomitant]
     Active Substance: OMEPRAZOLE
  6. NORETHINDRONE [Concomitant]
     Active Substance: NORETHINDRONE
  7. ERYTHROMYCIN [Concomitant]
     Active Substance: ERYTHROMYCIN

REACTIONS (6)
  - Cognitive disorder [None]
  - Akathisia [None]
  - Dystonia [None]
  - Rash [None]
  - Dermatitis [None]
  - Therapy change [None]

NARRATIVE: CASE EVENT DATE: 20211222
